FAERS Safety Report 21561930 (Version 3)
Quarter: 2022Q4

REPORT INFORMATION
  Report Type: Spontaneous
  Country: FR (occurrence: FR)
  Receive Date: 20221107
  Receipt Date: 20221128
  Transmission Date: 20230113
  Serious: Yes (Death, Life-Threatening, Hospitalization, Other)
  Sender: FDA-Public Use
  Company Number: FR-AstraZeneca-2012SE69648

PATIENT
  Age: 48 Year
  Sex: Male

DRUGS (20)
  1. MEROPENEM [Suspect]
     Active Substance: MEROPENEM
     Dosage: UNK
     Route: 042
     Dates: start: 20120710, end: 20120716
  2. MEROPENEM [Suspect]
     Active Substance: MEROPENEM
     Dosage: UNK
     Route: 042
     Dates: start: 20120726, end: 20120803
  3. LANSOPRAZOLE [Suspect]
     Active Substance: LANSOPRAZOLE
     Dosage: UNK
     Route: 048
     Dates: start: 20120716, end: 20120730
  4. FUROSEMIDE [Suspect]
     Active Substance: FUROSEMIDE
     Dosage: UNK
     Route: 042
     Dates: start: 20120703, end: 20120709
  5. FUROSEMIDE [Suspect]
     Active Substance: FUROSEMIDE
     Dosage: UNK
     Route: 042
     Dates: start: 20120721, end: 20120724
  6. FUROSEMIDE [Suspect]
     Active Substance: FUROSEMIDE
     Dosage: UNK
     Route: 042
     Dates: start: 20120727, end: 20120731
  7. HEPARIN SODIUM [Suspect]
     Active Substance: HEPARIN SODIUM
     Dosage: UNK
     Route: 042
     Dates: start: 20120701, end: 20120707
  8. HEPARIN SODIUM [Suspect]
     Active Substance: HEPARIN SODIUM
     Dosage: UNK
     Route: 042
     Dates: start: 20120721, end: 20120725
  9. HEPARIN SODIUM [Suspect]
     Active Substance: HEPARIN SODIUM
     Dosage: UNK
     Route: 042
     Dates: start: 20120727, end: 20120731
  10. METRONIDAZOLE BENZOATE [Suspect]
     Active Substance: METRONIDAZOLE BENZOATE
     Indication: Respiratory distress
     Dosage: UNK
     Route: 065
     Dates: start: 20120626, end: 20120702
  11. METRONIDAZOLE BENZOATE [Suspect]
     Active Substance: METRONIDAZOLE BENZOATE
     Dosage: UNK
     Route: 065
     Dates: start: 20120728
  12. COLISTIN SULFATE [Suspect]
     Active Substance: COLISTIN SULFATE
     Indication: Respiratory distress
     Dosage: UNK
     Route: 065
     Dates: start: 20120709, end: 20120731
  13. COLISTIN SULFATE [Suspect]
     Active Substance: COLISTIN SULFATE
     Dosage: UNK
     Route: 065
     Dates: start: 20120810
  14. ACETAMINOPHEN [Concomitant]
     Active Substance: ACETAMINOPHEN
     Dosage: UNK
  15. IBUPROFEN [Concomitant]
     Active Substance: IBUPROFEN
     Dosage: UNK
     Dates: start: 20120621
  16. TIXOCORTOL PIVALATE [Concomitant]
     Active Substance: TIXOCORTOL PIVALATE
     Dosage: UNK
  17. CANCIDAS [Concomitant]
     Active Substance: CASPOFUNGIN ACETATE
     Dosage: UNK
     Dates: start: 20120809
  18. CEFEPIME HYDROCHLORIDE [Concomitant]
     Active Substance: CEFEPIME HYDROCHLORIDE
     Dosage: UNK
     Dates: start: 20120810
  19. VANCOMYCIN HYDROCHLORIDE [Concomitant]
     Active Substance: VANCOMYCIN HYDROCHLORIDE
     Dosage: UNK
     Dates: start: 20120810
  20. AMIKACIN [Concomitant]
     Active Substance: AMIKACIN
     Dosage: UNK
     Dates: start: 20120810

REACTIONS (3)
  - Drug reaction with eosinophilia and systemic symptoms [Fatal]
  - Staphylococcus test positive [Fatal]
  - Bacteraemia [Fatal]

NARRATIVE: CASE EVENT DATE: 20120729
